FAERS Safety Report 9341402 (Version 1)
Quarter: 2013Q2

REPORT INFORMATION
  Report Type: Spontaneous
  Country: US (occurrence: None)
  Receive Date: 20130610
  Receipt Date: 20130610
  Transmission Date: 20140414
  Serious: Yes (Hospitalization)
  Sender: FDA-Public Use
  Company Number: None

PATIENT
  Age: 58 Year
  Sex: Female
  Weight: 71.8 kg

DRUGS (1)
  1. CISPLATIN [Suspect]

REACTIONS (6)
  - Asthenia [None]
  - Nausea [None]
  - Vomiting [None]
  - Drug ineffective [None]
  - Cough [None]
  - Lung infiltration [None]
